FAERS Safety Report 19419466 (Version 1)
Quarter: 2021Q2

REPORT INFORMATION
  Report Type: Report from Study
  Country: AR (occurrence: AR)
  Receive Date: 20210615
  Receipt Date: 20210615
  Transmission Date: 20210717
  Serious: Yes (Other)
  Sender: FDA-Public Use
  Company Number: AR-TAKEDA-2021TUS037209

PATIENT
  Age: 9 Year
  Sex: Male

DRUGS (1)
  1. IDURSULFASE [Suspect]
     Active Substance: IDURSULFASE
     Indication: MUCOPOLYSACCHARIDOSIS II
     Dosage: 2 DOSAGE FORM, 0.5 MG/ KG, 1/WEEK
     Route: 042
     Dates: start: 20210608

REACTIONS (1)
  - Cochlea implant [Unknown]

NARRATIVE: CASE EVENT DATE: 20210609
